FAERS Safety Report 7830263-1 (Version None)
Quarter: 2011Q4

REPORT INFORMATION
  Report Type: 
  Country: None (occurrence: None)
  Receive Date: 20111021
  Receipt Date: 20111007
  Transmission Date: 20120403
  Serious: No
  Sender: FDA-Public Use
  Company Number: US-SANOFI-AVENTIS-2011SA066373

PATIENT
  Age: 72 Year
  Sex: Female

DRUGS (2)
  1. GLYBURIDE [Suspect]
     Route: 065
  2. GLUCOPHAGE [Suspect]
     Route: 065

REACTIONS (2)
  - VIITH NERVE PARALYSIS [None]
  - BLOOD GLUCOSE INCREASED [None]
